FAERS Safety Report 7433298-6 (Version None)
Quarter: 2011Q2

REPORT INFORMATION
  Report Type: 
  Country: None (occurrence: None)
  Receive Date: 20110422
  Receipt Date: 20110414
  Transmission Date: 20111010
  Serious: Yes (Hospitalization, Other)
  Sender: FDA-Public Use
  Company Number: FR-ELI_LILLY_AND_COMPANY-FR201104004164

PATIENT
  Sex: Male

DRUGS (12)
  1. TARKA [Concomitant]
     Dosage: UNK
     Route: 065
  2. ALIMTA [Suspect]
     Indication: NON-SMALL CELL LUNG CANCER
     Dosage: 500 MG/M2, UNKNOWN
     Route: 042
     Dates: start: 20110211, end: 20110211
  3. CISPLATIN [Concomitant]
     Indication: NON-SMALL CELL LUNG CANCER
     Dosage: 75 MG/M2, UNKNOWN
     Route: 042
     Dates: start: 20110211, end: 20110211
  4. ZANIDIP [Concomitant]
     Dosage: UNK, UNKNOWN
     Route: 065
  5. ZYLORIC [Concomitant]
     Dosage: 100 MG, BID
     Route: 065
  6. FLUDEX [Concomitant]
     Dosage: 1.5 MG, QD
     Route: 065
  7. OXYCONTIN [Concomitant]
     Dosage: 10 MG, BID
     Route: 065
  8. OXYNORM [Concomitant]
     Dosage: 5 MG, PRN
     Route: 065
  9. PLAVIX [Concomitant]
     Dosage: 75 MG, QD
     Route: 065
  10. TAHOR [Concomitant]
     Dosage: 10 MG, QD
     Route: 065
  11. KARDEGIC [Concomitant]
     Dosage: 160 MG, QD
     Route: 065
  12. SECTRAL [Concomitant]
     Dosage: 400 MG, QD
     Route: 065

REACTIONS (11)
  - ALTERED STATE OF CONSCIOUSNESS [None]
  - DISORIENTATION [None]
  - RESPIRATORY DISORDER [None]
  - DECREASED APPETITE [None]
  - MIOSIS [None]
  - ASTHENIA [None]
  - THROMBOCYTOPENIA [None]
  - ANGINA PECTORIS [None]
  - CLONUS [None]
  - RENAL FAILURE ACUTE [None]
  - NEUTROPENIA [None]
